FAERS Safety Report 7460467-1 (Version None)
Quarter: 2011Q2

REPORT INFORMATION
  Report Type: 
  Country: None (occurrence: None)
  Receive Date: 20110505
  Receipt Date: 20110427
  Transmission Date: 20111010
  Serious: Yes (Death, Hospitalization, Other)
  Sender: FDA-Public Use
  Company Number: JP-CELGENEUS-087-21880-10111058

PATIENT
  Sex: Female

DRUGS (17)
  1. DECADRON [Concomitant]
     Indication: REFRACTORY CANCER
     Dosage: 40 MILLIGRAM
     Route: 041
     Dates: start: 20101009, end: 20101012
  2. ALTAT [Concomitant]
     Indication: PROPHYLAXIS
     Dosage: 150 MILLIGRAM
     Route: 065
     Dates: start: 20101001, end: 20101002
  3. ITRIZOLE [Concomitant]
     Indication: PROPHYLAXIS
     Dosage: 200 MILLIGRAM
     Route: 048
     Dates: start: 20101001, end: 20101103
  4. REVLIMID [Suspect]
     Indication: REFRACTORY CANCER
     Dosage: 25 MILLIGRAM
     Route: 048
     Dates: start: 20101008, end: 20101017
  5. REVLIMID [Suspect]
     Dosage: 15 MILLIGRAM
     Route: 048
     Dates: start: 20101105, end: 20101125
  6. DECADRON [Concomitant]
     Dosage: 40 MILLIGRAM
     Route: 041
     Dates: start: 20101017, end: 20101018
  7. REVLIMID [Suspect]
     Dosage: 25 MILLIGRAM
     Route: 048
     Dates: start: 20101203, end: 20101209
  8. LENADEX [Suspect]
     Indication: MULTIPLE MYELOMA
     Dosage: 40 MILLIGRAM
     Route: 048
     Dates: start: 20101105, end: 20101119
  9. LENADEX [Suspect]
     Indication: REFRACTORY CANCER
     Dosage: 40 MILLIGRAM
     Route: 048
     Dates: start: 20101203, end: 20101217
  10. BAKTAR [Concomitant]
     Indication: PROPHYLAXIS
     Dosage: 1 TABLET
     Route: 048
     Dates: start: 20101001, end: 20101103
  11. REVLIMID [Suspect]
     Indication: MULTIPLE MYELOMA
     Dosage: 15 MILLIGRAM
     Route: 048
     Dates: start: 20101001, end: 20101007
  12. REVLIMID [Suspect]
     Dosage: 25 MILLIGRAM
     Route: 048
     Dates: start: 20101210, end: 20101221
  13. DECADRON [Concomitant]
     Indication: MULTIPLE MYELOMA
     Dosage: 40 MILLIGRAM
     Route: 041
     Dates: start: 20101001, end: 20101004
  14. ALLOPURINOL [Concomitant]
     Indication: HYPERURICAEMIA
     Dosage: 100 MILLIGRAM
     Route: 065
     Dates: start: 20101001, end: 20101103
  15. BAKTAR [Concomitant]
     Dosage: 1 TABLET
     Route: 048
     Dates: start: 20101105, end: 20110105
  16. ITRIZOLE [Concomitant]
     Dosage: 200 MILLIGRAM
     Route: 048
     Dates: start: 20101105, end: 20110105
  17. CALCIUM CARBONATE [Concomitant]
     Indication: PROPHYLAXIS
     Dosage: 1500 MILLIGRAM
     Route: 048
     Dates: start: 20101105, end: 20110105

REACTIONS (4)
  - PLATELET COUNT DECREASED [None]
  - HAEMORRHAGE [None]
  - NEUTROPHIL COUNT DECREASED [None]
  - GASTROINTESTINAL HAEMORRHAGE [None]
